FAERS Safety Report 6139289-X (Version None)
Quarter: 2009Q2

REPORT INFORMATION
  Report Type: 
  Country: None (occurrence: None)
  Receive Date: 20090401
  Receipt Date: 20090324
  Transmission Date: 20091009
  Serious: Yes (Hospitalization)
  Sender: FDA-Public Use
  Company Number: US-BRISTOL-MYERS SQUIBB COMPANY-14566038

PATIENT
  Age: 67 Year
  Sex: Male

DRUGS (2)
  1. CETUXIMAB [Suspect]
     Indication: SQUAMOUS CELL CARCINOMA
  2. RADIOTHERAPY [Suspect]
     Indication: SQUAMOUS CELL CARCINOMA

REACTIONS (1)
  - STRESS CARDIOMYOPATHY [None]
